FAERS Safety Report 9961568 (Version 3)
Quarter: 2014Q2

REPORT INFORMATION
  Report Type: Spontaneous
  Country: FR (occurrence: FR)
  Receive Date: 20140305
  Receipt Date: 20140623
  Transmission Date: 20141212
  Serious: Yes (Hospitalization)
  Sender: FDA-Public Use
  Company Number: FR-JNJFOC-20140217860

PATIENT
  Age: 75 Year
  Sex: Male
  Weight: 70 kg

DRUGS (2)
  1. SIMPONI [Suspect]
     Indication: RHEUMATOID ARTHRITIS
     Route: 058
     Dates: start: 201311
  2. METHOTREXATE [Concomitant]
     Indication: RHEUMATOID ARTHRITIS
     Dosage: STARTED BEFORE 2000
     Route: 065

REACTIONS (10)
  - Cardiac failure [Recovering/Resolving]
  - Atrial fibrillation [Recovering/Resolving]
  - Acute pulmonary oedema [Recovering/Resolving]
  - Atrioventricular block complete [Recovering/Resolving]
  - Whipple^s disease [Recovered/Resolved]
  - Inflammation [Recovering/Resolving]
  - Peripheral venous disease [Recovering/Resolving]
  - Fungal oesophagitis [Recovering/Resolving]
  - Vitamin B12 deficiency [Recovering/Resolving]
  - Iron deficiency anaemia [Recovering/Resolving]
